FAERS Safety Report 6821304-9 (Version None)
Quarter: 2010Q3

REPORT INFORMATION
  Report Type: 
  Country: None (occurrence: None)
  Receive Date: 20100707
  Receipt Date: 20080710
  Transmission Date: 20110219
  Serious: No
  Sender: FDA-Public Use
  Company Number: US-PFIZER INC-2008043769

PATIENT
  Sex: Male
  Weight: 81.8 kg

DRUGS (3)
  1. ZOLOFT [Suspect]
     Indication: DEPRESSION
     Dates: end: 20080101
  2. DRUG USED IN DIABETES [Concomitant]
  3. INSULIN [Concomitant]

REACTIONS (1)
  - EJACULATION DISORDER [None]
